FAERS Safety Report 9149654 (Version 1)
Quarter: 2013Q1

REPORT INFORMATION
  Report Type: Spontaneous
  Country: US (occurrence: None)
  Receive Date: 20130129
  Receipt Date: 20130129
  Transmission Date: 20140127
  Serious: Yes (Other)
  Sender: FDA-Public Use
  Company Number: UTC-028200

PATIENT
  Age: 77 Year
  Sex: Female

DRUGS (1)
  1. TYVASO [Suspect]

REACTIONS (2)
  - Device malfunction [None]
  - Device damage [None]
